FAERS Safety Report 25832156 (Version 1)
Quarter: 2025Q3

REPORT INFORMATION
  Report Type: Spontaneous
  Country: US (occurrence: US)
  Receive Date: 20250922
  Receipt Date: 20250922
  Transmission Date: 20251021
  Serious: No
  Sender: MYLAN
  Company Number: US-MYLANLABS-2025M1078276

PATIENT
  Sex: Female

DRUGS (4)
  1. EMSAM [Suspect]
     Active Substance: SELEGILINE
     Indication: Depression
     Dosage: 12 MILLIGRAM, QD (PER DAY)
  2. EMSAM [Suspect]
     Active Substance: SELEGILINE
     Dosage: 12 MILLIGRAM, QD (PER DAY)
     Route: 062
  3. EMSAM [Suspect]
     Active Substance: SELEGILINE
     Dosage: 12 MILLIGRAM, QD (PER DAY)
     Route: 062
  4. EMSAM [Suspect]
     Active Substance: SELEGILINE
     Dosage: 12 MILLIGRAM, QD (PER DAY)

REACTIONS (2)
  - Expired product administered [Unknown]
  - Drug ineffective [Unknown]
